FAERS Safety Report 23677941 (Version 1)
Quarter: 2024Q1

REPORT INFORMATION
  Report Type: Spontaneous
  Country: US (occurrence: None)
  Receive Date: 20240326
  Receipt Date: 20240326
  Transmission Date: 20240410
  Serious: Yes (Other)
  Sender: FDA-Public Use
  Company Number: None

PATIENT
  Age: 42 Year
  Sex: Female

DRUGS (1)
  1. VYVANSE [Suspect]
     Active Substance: LISDEXAMFETAMINE DIMESYLATE
     Indication: Attention deficit hyperactivity disorder
     Dosage: 20MG DAILY ORAL?UNIT 30
     Route: 048

REACTIONS (5)
  - Product supply issue [None]
  - Stress [None]
  - Therapy interrupted [None]
  - Disturbance in attention [None]
  - Impaired quality of life [None]

NARRATIVE: CASE EVENT DATE: 20240322
